FAERS Safety Report 4434652-7 (Version None)
Quarter: 2004Q3

REPORT INFORMATION
  Report Type: 
  Country: None (occurrence: None)
  Receive Date: 20040826
  Receipt Date: 20040813
  Transmission Date: 20050211
  Serious: Yes (Hospitalization, Other)
  Sender: FDA-Public Use
  Company Number: 2004S1002107

PATIENT
  Age: 47 Year
  Sex: Male
  Weight: 83.9154 kg

DRUGS (3)
  1. ATENOLOL [Suspect]
     Indication: HYPERTENSION
     Dosage: 50MG QD, ORAL
     Route: 048
     Dates: start: 20040612, end: 20040723
  2. ATENOLOL [Suspect]
     Indication: MYOCARDIAL INFARCTION
     Dosage: 50MG QD, ORAL
     Route: 048
     Dates: start: 20040612, end: 20040723
  3. ASPIRIN [Concomitant]

REACTIONS (3)
  - ANGINA PECTORIS [None]
  - ARRHYTHMIA [None]
  - INTRACARDIAC THROMBUS [None]
